FAERS Safety Report 23300533 (Version 1)
Quarter: 2023Q4

REPORT INFORMATION
  Report Type: Report from Study
  Country: PL (occurrence: PL)
  Receive Date: 20231215
  Receipt Date: 20231215
  Transmission Date: 20240109
  Serious: Yes (Death, Life-Threatening, Hospitalization)
  Sender: FDA-Public Use
  Company Number: PL-JNJFOC-20231237226

PATIENT
  Age: 66 Year
  Sex: Female
  Weight: 55 kg

DRUGS (18)
  1. DARZALEX [Suspect]
     Active Substance: DARATUMUMAB
     Indication: Plasma cell myeloma
     Route: 058
     Dates: start: 20230116, end: 20230116
  2. DARZALEX [Suspect]
     Active Substance: DARATUMUMAB
     Route: 058
     Dates: start: 20230123
  3. DARZALEX [Suspect]
     Active Substance: DARATUMUMAB
     Route: 058
     Dates: start: 20230130
  4. DARZALEX [Suspect]
     Active Substance: DARATUMUMAB
     Route: 058
     Dates: start: 20230206
  5. DARZALEX [Suspect]
     Active Substance: DARATUMUMAB
     Route: 058
     Dates: start: 20230213
  6. DARZALEX [Suspect]
     Active Substance: DARATUMUMAB
     Route: 058
     Dates: start: 20230220
  7. DARZALEX [Suspect]
     Active Substance: DARATUMUMAB
     Route: 058
     Dates: start: 20230227
  8. ELRANATAMAB [Suspect]
     Active Substance: ELRANATAMAB
     Indication: Plasma cell myeloma
     Route: 058
     Dates: start: 20230102, end: 20230102
  9. ELRANATAMAB [Suspect]
     Active Substance: ELRANATAMAB
     Route: 058
     Dates: start: 20230105
  10. ELRANATAMAB [Suspect]
     Active Substance: ELRANATAMAB
     Route: 058
     Dates: start: 20230109
  11. ELRANATAMAB [Suspect]
     Active Substance: ELRANATAMAB
     Route: 058
     Dates: start: 20230116
  12. ELRANATAMAB [Suspect]
     Active Substance: ELRANATAMAB
     Route: 058
     Dates: start: 20230123
  13. ELRANATAMAB [Suspect]
     Active Substance: ELRANATAMAB
     Route: 058
     Dates: start: 20230130
  14. ELRANATAMAB [Suspect]
     Active Substance: ELRANATAMAB
     Route: 058
     Dates: start: 20230206
  15. ELRANATAMAB [Suspect]
     Active Substance: ELRANATAMAB
     Route: 058
     Dates: start: 20230213
  16. ELRANATAMAB [Suspect]
     Active Substance: ELRANATAMAB
     Route: 058
     Dates: start: 20230220
  17. ELRANATAMAB [Suspect]
     Active Substance: ELRANATAMAB
     Route: 058
     Dates: start: 20230227
  18. AMOXICILLIN\CLAVULANIC ACID [Concomitant]
     Active Substance: AMOXICILLIN\CLAVULANIC ACID
     Dosage: 2X DAY
     Route: 042

REACTIONS (1)
  - Upper gastrointestinal haemorrhage [Fatal]

NARRATIVE: CASE EVENT DATE: 20230311
